FAERS Safety Report 20487211 (Version 4)
Quarter: 2023Q1

REPORT INFORMATION
  Report Type: Spontaneous
  Country: SG (occurrence: None)
  Receive Date: 20220217
  Receipt Date: 20230117
  Transmission Date: 20230418
  Serious: Yes (Other)
  Sender: FDA-Public Use
  Company Number: SG-ROCHE-3026474

PATIENT

DRUGS (2)
  1. ATEZOLIZUMAB [Suspect]
     Active Substance: ATEZOLIZUMAB
     Indication: Hepatocellular carcinoma
     Route: 041
     Dates: end: 20221108
  2. BEVACIZUMAB [Suspect]
     Active Substance: BEVACIZUMAB
     Indication: Hepatocellular carcinoma
     Route: 065
     Dates: end: 20221108

REACTIONS (4)
  - Post procedural haemorrhage [Unknown]
  - Hypertransaminasaemia [Unknown]
  - Pyrexia [Unknown]
  - Disease progression [Unknown]

NARRATIVE: CASE EVENT DATE: 20211129
